FAERS Safety Report 18628286 (Version 1)
Quarter: 2020Q4

REPORT INFORMATION
  Report Type: Spontaneous
  Country: US (occurrence: US)
  Receive Date: 20201217
  Receipt Date: 20201217
  Transmission Date: 20210114
  Serious: Yes (Other)
  Sender: FDA-Public Use
  Company Number: None

PATIENT
  Age: 62 Year
  Sex: Female
  Weight: 51.48 kg

DRUGS (6)
  1. CAPECITABINE. [Suspect]
     Active Substance: CAPECITABINE
     Indication: CHOLANGIOCARCINOMA
     Route: 048
     Dates: start: 20201120
  2. RELIV [Concomitant]
  3. LUNASIN [Concomitant]
  4. PRILOSEC [Concomitant]
     Active Substance: OMEPRAZOLE MAGNESIUM
  5. GAS-X [Concomitant]
     Active Substance: DIMETHICONE
  6. BLACK CURRENT [Concomitant]

REACTIONS (1)
  - Oral pain [None]

NARRATIVE: CASE EVENT DATE: 20201217
